FAERS Safety Report 16269136 (Version 1)
Quarter: 2019Q2

REPORT INFORMATION
  Report Type: Spontaneous
  Country: US (occurrence: US)
  Receive Date: 20190502
  Receipt Date: 20190502
  Transmission Date: 20190711
  Serious: Yes (Hospitalization)
  Sender: FDA-Public Use
  Company Number: None

PATIENT
  Age: 44 Year
  Sex: Female
  Weight: 63 kg

DRUGS (1)
  1. BENLYSTA [Suspect]
     Active Substance: BELIMUMAB
     Indication: SYSTEMIC LUPUS ERYTHEMATOSUS
     Route: 042

REACTIONS (20)
  - Flank pain [None]
  - Insomnia [None]
  - Dysphemia [None]
  - Memory impairment [None]
  - Pollakiuria [None]
  - Bradycardia [None]
  - Somnolence [None]
  - Hypoaesthesia [None]
  - Dizziness [None]
  - Chest pain [None]
  - Tremor [None]
  - Back pain [None]
  - Confusional state [None]
  - Dysphagia [None]
  - Hypotension [None]
  - Headache [None]
  - Contusion [None]
  - Asthenia [None]
  - Terminal insomnia [None]
  - General physical health deterioration [None]

NARRATIVE: CASE EVENT DATE: 20190305
